FAERS Safety Report 6944385-0 (Version None)
Quarter: 2010Q3

REPORT INFORMATION
  Report Type: 
  Country: None (occurrence: None)
  Receive Date: 20100827
  Receipt Date: 20100819
  Transmission Date: 20110219
  Serious: Yes (Hospitalization)
  Sender: FDA-Public Use
  Company Number: US-US-EMD SERONO, INC.-7015017

PATIENT
  Sex: Male
  Weight: 91 kg

DRUGS (1)
  1. REBIF [Suspect]
     Indication: MULTIPLE SCLEROSIS
     Route: 058
     Dates: start: 20070626

REACTIONS (3)
  - FALL [None]
  - MULTIPLE SCLEROSIS RELAPSE [None]
  - ROTATOR CUFF SYNDROME [None]
